FAERS Safety Report 10134929 (Version 2)
Quarter: 2014Q2

REPORT INFORMATION
  Report Type: Spontaneous
  Country: US (occurrence: US)
  Receive Date: 20140428
  Receipt Date: 20140428
  Transmission Date: 20141212
  Serious: Yes (Death)
  Sender: FDA-Public Use
  Company Number: US-EXELIXIS-CABO-14003996

PATIENT
  Age: 51 Year
  Sex: Male

DRUGS (19)
  1. COMETRIQ [Suspect]
     Indication: PROSTATE CANCER
     Dosage: 60 MG, QD
     Route: 048
     Dates: start: 20140131
  2. HYDROMORPHONE [Concomitant]
  3. LUPRON [Concomitant]
  4. IPRATROPIUM [Concomitant]
  5. ALBUTEROL [Concomitant]
  6. XGEVA [Concomitant]
  7. MIRALAX [Concomitant]
  8. DOCUSATE [Concomitant]
  9. FLOMAX [Concomitant]
  10. LUTEIN [Concomitant]
  11. MAG-OXIDE [Concomitant]
  12. SOMA [Concomitant]
  13. ZOFRAN [Concomitant]
  14. ZANTAC [Concomitant]
  15. ZOCOR [Concomitant]
  16. LIDODERM [Concomitant]
  17. ROBITUSSIN [Concomitant]
  18. NEXIUM [Concomitant]
  19. TRANSDERM PATCH [Concomitant]

REACTIONS (7)
  - Malignant neoplasm progression [Fatal]
  - Micturition urgency [Unknown]
  - Local swelling [Unknown]
  - Pollakiuria [Unknown]
  - Oedema peripheral [Recovering/Resolving]
  - Dyspepsia [Unknown]
  - Off label use [Unknown]
